FAERS Safety Report 18299351 (Version 1)
Quarter: 2020Q3

REPORT INFORMATION
  Report Type: Spontaneous
  Country: US (occurrence: US)
  Receive Date: 20200922
  Receipt Date: 20200922
  Transmission Date: 20201103
  Serious: Yes (Death)
  Sender: FDA-Public Use
  Company Number: None

PATIENT
  Age: 89 Year
  Sex: Female
  Weight: 61.3 kg

DRUGS (2)
  1. TOCILIZUMAB. [Concomitant]
     Active Substance: TOCILIZUMAB
     Dates: start: 20200714, end: 20200714
  2. REMDESIVIR. [Suspect]
     Active Substance: REMDESIVIR
     Indication: COVID-19
     Dates: start: 20200714, end: 20200716

REACTIONS (2)
  - Septic shock [None]
  - Acute kidney injury [None]

NARRATIVE: CASE EVENT DATE: 20200719
